FAERS Safety Report 17179219 (Version 1)
Quarter: 2019Q4

REPORT INFORMATION
  Report Type: Spontaneous
  Country: US (occurrence: US)
  Receive Date: 20191219
  Receipt Date: 20191219
  Transmission Date: 20200122
  Serious: No
  Sender: FDA-Public Use
  Company Number: US-JNJFOC-20191224745

PATIENT
  Sex: Female
  Weight: 83.54 kg

DRUGS (1)
  1. WOMENS ROGAINE [Suspect]
     Active Substance: MINOXIDIL
     Indication: ALOPECIA
     Dosage: WHAT IT TOLD ON LABEL
     Route: 061

REACTIONS (4)
  - Application site irritation [Recovered/Resolved]
  - Hair disorder [Recovered/Resolved]
  - Application site pain [Recovered/Resolved]
  - Inappropriate schedule of product administration [Unknown]
